FAERS Safety Report 7637833-4 (Version None)
Quarter: 2011Q3

REPORT INFORMATION
  Report Type: 
  Country: None (occurrence: None)
  Receive Date: 20110718
  Receipt Date: 20110706
  Transmission Date: 20111222
  Serious: Yes (Hospitalization, Other)
  Sender: FDA-Public Use
  Company Number: 2011027658

PATIENT
  Sex: Female
  Weight: 64 kg

DRUGS (10)
  1. HIZENTRA [Suspect]
     Indication: SELECTIVE IGG SUBCLASS DEFICIENCY
     Dosage: (75 ML 1X/WEEK, IN 5 ROTATING SITES, RATE  WAS LOWERED ON 18-FEB-2011, SO INFUSION LASTED FOUR 4 HOU
     Route: 058
     Dates: start: 20110128
  2. HIZENTRA [Suspect]
  3. VICODIN [Suspect]
     Indication: BACK INJURY
     Dates: end: 20110618
  4. HIZENTRA [Suspect]
  5. HIZENTRA [Suspect]
  6. METOPROLOL TARTRATE [Concomitant]
  7. HIZENTRA [Suspect]
  8. VANTIN [Concomitant]
  9. HIZENTRA [Suspect]
  10. ZYRTEC [Concomitant]

REACTIONS (16)
  - FLATULENCE [None]
  - CHILLS [None]
  - MYALGIA [None]
  - FATIGUE [None]
  - MIGRAINE [None]
  - HEADACHE [None]
  - VOMITING [None]
  - PAIN IN EXTREMITY [None]
  - CHEST PAIN [None]
  - BACK DISORDER [None]
  - INCREASED UPPER AIRWAY SECRETION [None]
  - BLOOD SODIUM DECREASED [None]
  - URINARY TRACT INFECTION [None]
  - HYPOTHALAMO-PITUITARY DISORDER [None]
  - NAUSEA [None]
  - TREMOR [None]
